FAERS Safety Report 24172795 (Version 3)
Quarter: 2024Q3

REPORT INFORMATION
  Report Type: Spontaneous
  Country: FR (occurrence: FR)
  Receive Date: 20240805
  Receipt Date: 20240813
  Transmission Date: 20241017
  Serious: Yes (Hospitalization, Other)
  Sender: SANOFI AVENTIS
  Company Number: None

PATIENT
  Age: 66 Year
  Sex: Male

DRUGS (18)
  1. PREDNISONE [Suspect]
     Active Substance: PREDNISONE
     Indication: Pemphigus
     Dosage: 40 MG, QD
     Route: 048
     Dates: start: 20240222, end: 20240322
  2. PREDNISONE [Suspect]
     Active Substance: PREDNISONE
     Dosage: 60 MG, QD
     Route: 048
     Dates: start: 20240322, end: 20240325
  3. PREDNISONE [Suspect]
     Active Substance: PREDNISONE
     Dosage: 50 MG, QD
     Route: 048
     Dates: start: 20240325, end: 20240401
  4. PREDNISONE [Suspect]
     Active Substance: PREDNISONE
     Dosage: 40 MG, QD
     Route: 048
     Dates: start: 20240401, end: 20240408
  5. PREDNISONE [Suspect]
     Active Substance: PREDNISONE
     Dosage: 40 MG, QD
     Route: 048
     Dates: start: 20240408, end: 20240415
  6. PREDNISONE [Suspect]
     Active Substance: PREDNISONE
     Dosage: 20 MG, QD
     Route: 048
     Dates: start: 20240415, end: 20240422
  7. PREDNISONE [Suspect]
     Active Substance: PREDNISONE
     Dosage: 10 MG, QD
     Route: 048
     Dates: start: 20240422, end: 20240429
  8. INSULIN GLARGINE [Suspect]
     Active Substance: INSULIN GLARGINE
     Indication: Diabetes mellitus
     Dosage: 26 IU, QD
     Route: 058
     Dates: start: 20240323
  9. ATORVASTATIN [Suspect]
     Active Substance: ATORVASTATIN
     Indication: Dyslipidaemia
     Dosage: 20 MG, QD
     Route: 048
  10. IRBESARTAN [Suspect]
     Active Substance: IRBESARTAN
     Indication: Hypertension
     Dosage: 75 MG, QD
     Route: 048
  11. LANSOPRAZOLE [Suspect]
     Active Substance: LANSOPRAZOLE
     Indication: Prophylaxis
     Dosage: 15 MG, QD
     Route: 048
  12. METFORMIN HYDROCHLORIDE [Suspect]
     Active Substance: METFORMIN HYDROCHLORIDE
     Indication: Diabetes mellitus
     Dosage: 1 G, QD
     Route: 048
     Dates: start: 20240323
  13. POTASSIUM CHLORIDE [Suspect]
     Active Substance: POTASSIUM CHLORIDE
     Indication: Pemphigus
     Dosage: 600 MG, QD
  14. DOLIPRANE [Suspect]
     Active Substance: ACETAMINOPHEN
     Indication: Pemphigus
     Dosage: 1 TABLET EVERY 6 HOURS IN CASE OF PAIN (MAX 4G/DAY)
  15. TRAMADOL HYDROCHLORIDE [Suspect]
     Active Substance: TRAMADOL HYDROCHLORIDE
     Dosage: 1 TABLET MORNING AND EVENING
  16. OCREVUS [Suspect]
     Active Substance: OCRELIZUMAB
     Indication: Pemphigus
     Dosage: 1 DF, 1X
     Route: 042
     Dates: start: 20240311
  17. OCREVUS [Suspect]
     Active Substance: OCRELIZUMAB
     Dosage: 1 DF, 1X
     Route: 042
     Dates: start: 20240325
  18. HYDROCORTISONE [Concomitant]
     Active Substance: HYDROCORTISONE\HYDROCORTISONE ACETATE
     Indication: Pemphigus
     Dosage: UNK

REACTIONS (2)
  - Ischaemic stroke [Recovering/Resolving]
  - Hypogammaglobulinaemia [Unknown]

NARRATIVE: CASE EVENT DATE: 20240328
